FAERS Safety Report 6440014-3 (Version None)
Quarter: 2009Q4

REPORT INFORMATION
  Report Type: 
  Country: None (occurrence: None)
  Receive Date: 20091113
  Receipt Date: 20091102
  Transmission Date: 20100525
  Serious: Yes (Hospitalization)
  Sender: FDA-Public Use
  Company Number: IT-GENENTECH-293737

PATIENT
  Sex: Female

DRUGS (16)
  1. MABTHERA [Suspect]
     Indication: CRYOGLOBULINAEMIA
     Dosage: 1000 MG, UNK
     Route: 042
     Dates: start: 20031002, end: 20091002
  2. DELTACORTENE [Concomitant]
     Indication: DRUG USE FOR UNKNOWN INDICATION
  3. TENORMIN [Concomitant]
     Indication: DRUG USE FOR UNKNOWN INDICATION
  4. TRIATEC [Concomitant]
     Indication: DRUG USE FOR UNKNOWN INDICATION
  5. PRITOR [Concomitant]
     Indication: DRUG USE FOR UNKNOWN INDICATION
  6. NORVASC [Concomitant]
     Indication: DRUG USE FOR UNKNOWN INDICATION
  7. ASPIRIN [Concomitant]
     Indication: DRUG USE FOR UNKNOWN INDICATION
  8. LYRICA [Concomitant]
     Indication: DRUG USE FOR UNKNOWN INDICATION
  9. FOLIC ACID [Concomitant]
     Indication: DRUG USE FOR UNKNOWN INDICATION
  10. ZEFFIX [Concomitant]
     Indication: DRUG USE FOR UNKNOWN INDICATION
  11. ARANESP [Concomitant]
     Indication: DRUG USE FOR UNKNOWN INDICATION
  12. CARDURA [Concomitant]
     Indication: DRUG USE FOR UNKNOWN INDICATION
  13. LASIX [Concomitant]
     Indication: DRUG USE FOR UNKNOWN INDICATION
  14. ZYLORIC [Concomitant]
     Indication: DRUG USE FOR UNKNOWN INDICATION
  15. FOSAMAX [Concomitant]
     Indication: DRUG USE FOR UNKNOWN INDICATION
  16. DEDROGYL [Concomitant]
     Indication: DRUG USE FOR UNKNOWN INDICATION

REACTIONS (1)
  - ISCHAEMIA [None]
